FAERS Safety Report 5022660-7 (Version None)
Quarter: 2006Q2

REPORT INFORMATION
  Report Type: 
  Country: None (occurrence: None)
  Receive Date: 20060609
  Receipt Date: 20051222
  Transmission Date: 20061013
  Serious: Yes (Hospitalization)
  Sender: FDA-Public Use
  Company Number: IT-ABBOTT-05P-083-0320580-00

PATIENT
  Sex: Male

DRUGS (11)
  1. DEPAKENE [Suspect]
     Indication: EPILEPSY
     Route: 048
     Dates: start: 20051205, end: 20051206
  2. FUROSEMIDE [Concomitant]
     Indication: ISCHAEMIC CARDIOMYOPATHY
     Route: 048
  3. FUROSEMIDE [Concomitant]
     Indication: HYPERTENSIVE CARDIOMYOPATHY
  4. LEVOTHYROXINE SODIUM [Concomitant]
     Indication: HYPOTHYROIDISM
     Route: 048
  5. TELMISARTAN [Concomitant]
     Indication: ISCHAEMIC CARDIOMYOPATHY
     Route: 048
  6. TELMISARTAN [Concomitant]
     Indication: HYPERTENSIVE CARDIOMYOPATHY
  7. ATENOLOL [Concomitant]
     Indication: ISCHAEMIC CARDIOMYOPATHY
     Route: 048
  8. ATENOLOL [Concomitant]
     Indication: HYPERTENSIVE CARDIOMYOPATHY
  9. ACETYLSALICYLIC ACID SRT [Concomitant]
     Indication: ISCHAEMIC CARDIOMYOPATHY
     Route: 048
  10. ACETYLSALICYLIC ACID SRT [Concomitant]
     Indication: HYPERTENSIVE CARDIOMYOPATHY
  11. INSULIN [Concomitant]
     Indication: DIABETES MELLITUS INSULIN-DEPENDENT
     Route: 058

REACTIONS (5)
  - COUGH [None]
  - PRURITUS [None]
  - THROAT TIGHTNESS [None]
  - URTICARIA [None]
  - URTICARIA GENERALISED [None]
